FAERS Safety Report 11693554 (Version 2)
Quarter: 2015Q4

REPORT INFORMATION
  Report Type: Spontaneous
  Country: CA (occurrence: CA)
  Receive Date: 20151103
  Receipt Date: 20151130
  Transmission Date: 20160304
  Serious: Yes (Hospitalization, Other)
  Sender: FDA-Public Use
  Company Number: CA-GILEAD-2015-0178777

PATIENT
  Age: 58 Year
  Sex: Male
  Weight: 70.5 kg

DRUGS (12)
  1. SPIRONOLACTONE. [Concomitant]
     Active Substance: SPIRONOLACTONE
     Dosage: 75 MG, QD
  2. SPIRONOLACTONE. [Concomitant]
     Active Substance: SPIRONOLACTONE
     Dosage: 100 MG, QD
     Dates: start: 20150902
  3. HARVONI [Suspect]
     Active Substance: LEDIPASVIR\SOFOSBUVIR
     Indication: HEPATITIS C
     Dosage: UNK
     Route: 065
     Dates: start: 20150815, end: 20151107
  4. BISOPROLOL [Concomitant]
     Active Substance: BISOPROLOL
  5. TECTA [Concomitant]
     Active Substance: PANTOPRAZOLE MAGNESIUM
     Dosage: 40 MG, QD
  6. ATIVAN [Concomitant]
     Active Substance: LORAZEPAM
  7. FERROUS SULFATE [Concomitant]
     Active Substance: FERROUS SULFATE\FERROUS SULFATE, DRIED
  8. FUROSEMIDE. [Concomitant]
     Active Substance: FUROSEMIDE
  9. NORFLOXACIN [Concomitant]
     Active Substance: NORFLOXACIN
  10. DOLORAL [Concomitant]
  11. LANTUS [Concomitant]
     Active Substance: INSULIN GLARGINE
  12. NADOLOL. [Concomitant]
     Active Substance: NADOLOL

REACTIONS (3)
  - Peritonitis bacterial [Recovering/Resolving]
  - Hepatic cirrhosis [Recovering/Resolving]
  - Gastric antral vascular ectasia [Recovering/Resolving]

NARRATIVE: CASE EVENT DATE: 20150825
